FAERS Safety Report 19259722 (Version 2)
Quarter: 2021Q2

REPORT INFORMATION
  Report Type: Spontaneous
  Country: GB (occurrence: GB)
  Receive Date: 20210514
  Receipt Date: 20210527
  Transmission Date: 20210717
  Serious: Yes (Other)
  Sender: FDA-Public Use
  Company Number: GB-PFIZER INC-2021502848

PATIENT
  Age: 59 Year
  Sex: Male
  Weight: 80 kg

DRUGS (5)
  1. TADALAFIL. [Suspect]
     Active Substance: TADALAFIL
     Indication: ERECTILE DYSFUNCTION
     Dosage: 5 MILLIGRAM, ONCE A DAY
     Route: 048
     Dates: start: 20210224, end: 20210325
  2. TADALAFIL. [Suspect]
     Active Substance: TADALAFIL
     Dosage: 7.5 MILLIGRAM AND 5MG ON ALTERNATE DAYS
     Route: 048
     Dates: start: 20210401
  3. SILDENAFIL CITRATE. [Suspect]
     Active Substance: SILDENAFIL CITRATE
     Dosage: UNK
     Route: 048
  4. TADALAFIL. [Suspect]
     Active Substance: TADALAFIL
     Indication: BENIGN PROSTATIC HYPERPLASIA
     Dosage: 7.5 MILLIGRAM
     Route: 048
     Dates: start: 20210325, end: 20210401
  5. TAMSULOSIN [Concomitant]
     Active Substance: TAMSULOSIN
     Indication: BENIGN PROSTATIC HYPERPLASIA
     Dosage: 1 DF, 1X/DAY
     Route: 048
     Dates: start: 201701

REACTIONS (7)
  - Off label use [Unknown]
  - Pollakiuria [Recovered/Resolved]
  - Drug ineffective [Recovered/Resolved]
  - Erectile dysfunction [Recovered/Resolved]
  - Visual impairment [Recovered/Resolved]
  - Product substitution issue [Unknown]
  - Nasal congestion [Recovering/Resolving]

NARRATIVE: CASE EVENT DATE: 201701
